FAERS Safety Report 8160734-2 (Version None)
Quarter: 2012Q1

REPORT INFORMATION
  Report Type: 
  Country: None (occurrence: None)
  Receive Date: 20120223
  Receipt Date: 20120213
  Transmission Date: 20120608
  Serious: Yes (Hospitalization, Other)
  Sender: FDA-Public Use
  Company Number: PHHY2009CA16718

PATIENT
  Sex: Female

DRUGS (1)
  1. SANDOSTATIN LAR [Suspect]
     Indication: CARCINOID TUMOUR
     Dosage: 60 MG EVERY 03 WEEKS
     Route: 030
     Dates: start: 20071115

REACTIONS (10)
  - LABYRINTHITIS [None]
  - OEDEMA PERIPHERAL [None]
  - DIZZINESS [None]
  - FATIGUE [None]
  - HYPERTENSION [None]
  - ABDOMINAL TENDERNESS [None]
  - BLOOD PRESSURE SYSTOLIC INCREASED [None]
  - GOUT [None]
  - VERTIGO [None]
  - ABDOMINAL DISTENSION [None]
